FAERS Safety Report 25458038 (Version 1)
Quarter: 2025Q2

REPORT INFORMATION
  Report Type: Spontaneous
  Country: NL (occurrence: NL)
  Receive Date: 20250620
  Receipt Date: 20250620
  Transmission Date: 20250716
  Serious: Yes (Hospitalization, Other)
  Sender: STRIDES
  Company Number: NL-STRIDES ARCOLAB LIMITED-2025SP007335

PATIENT
  Age: 5 Decade
  Sex: Female

DRUGS (16)
  1. PREDNISOLONE [Suspect]
     Active Substance: PREDNISOLONE
     Indication: Impetigo herpetiformis
     Route: 048
  2. PREDNISOLONE [Suspect]
     Active Substance: PREDNISOLONE
     Route: 048
  3. PREDNISOLONE [Suspect]
     Active Substance: PREDNISOLONE
     Route: 048
  4. PREDNISOLONE [Suspect]
     Active Substance: PREDNISOLONE
     Route: 065
  5. TRIAMCINOLONE ACETONIDE [Suspect]
     Active Substance: TRIAMCINOLONE ACETONIDE
     Indication: Impetigo herpetiformis
     Route: 061
  6. URSODIOL [Suspect]
     Active Substance: URSODIOL
     Indication: Cholestasis
     Route: 065
  7. CYCLOSPORINE [Suspect]
     Active Substance: CYCLOSPORINE
     Indication: Impetigo herpetiformis
     Route: 065
  8. CYCLOSPORINE [Suspect]
     Active Substance: CYCLOSPORINE
     Route: 065
  9. MORPHINE SULFATE [Suspect]
     Active Substance: MORPHINE SULFATE
     Indication: Pain
     Route: 065
  10. CLOBETASOL [Suspect]
     Active Substance: CLOBETASOL
     Indication: Impetigo herpetiformis
     Route: 065
  11. COSMETICS [Suspect]
     Active Substance: COSMETICS
     Indication: Impetigo herpetiformis
     Route: 065
  12. CERTOLIZUMAB PEGOL [Suspect]
     Active Substance: CERTOLIZUMAB PEGOL
     Indication: Impetigo herpetiformis
     Route: 065
  13. COTRIMOXAZOLE [Suspect]
     Active Substance: SULFAMETHOXAZOLE\TRIMETHOPRIM
     Indication: Antibiotic prophylaxis
     Route: 065
  14. FUSIDIC ACID [Suspect]
     Active Substance: FUSIDIC ACID
     Indication: Impetigo herpetiformis
     Route: 065
  15. VASELINE PURE [Suspect]
     Active Substance: PETROLATUM
     Indication: Impetigo herpetiformis
     Route: 065
  16. PARAFFIN [Suspect]
     Active Substance: PARAFFIN
     Indication: Impetigo herpetiformis
     Route: 065

REACTIONS (3)
  - Disease progression [Unknown]
  - Maternal exposure during pregnancy [Unknown]
  - Off label use [Unknown]
